FAERS Safety Report 25102397 (Version 1)
Quarter: 2025Q1

REPORT INFORMATION
  Report Type: Report from Study
  Country: US (occurrence: US)
  Receive Date: 20250320
  Receipt Date: 20250320
  Transmission Date: 20250409
  Serious: Yes (Other)
  Sender: ABBVIE
  Company Number: US-ABBVIE-6178816

PATIENT
  Sex: Female

DRUGS (1)
  1. HUMIRA [Suspect]
     Active Substance: ADALIMUMAB
     Indication: Crohn^s disease
     Route: 058
     Dates: start: 202312

REACTIONS (4)
  - Breast cyst [Not Recovered/Not Resolved]
  - Rash [Not Recovered/Not Resolved]
  - Dermal cyst [Not Recovered/Not Resolved]
  - Pain [Unknown]
